FAERS Safety Report 21684476 (Version 3)
Quarter: 2023Q1

REPORT INFORMATION
  Report Type: Spontaneous
  Country: CL (occurrence: CL)
  Receive Date: 20221205
  Receipt Date: 20230201
  Transmission Date: 20230417
  Serious: Yes (Life-Threatening, Hospitalization, Other)
  Sender: FDA-Public Use
  Company Number: CL-MLMSERVICE-20221123-3937177-1

PATIENT
  Age: 56 Year
  Sex: Male
  Weight: 67 kg

DRUGS (3)
  1. CYTARABINE [Suspect]
     Active Substance: CYTARABINE
     Indication: Acute myeloid leukaemia
     Dosage: 1750 MG IV FOR 5 DAYS
     Route: 042
     Dates: start: 2021
  2. ETOPOSIDE [Suspect]
     Active Substance: ETOPOSIDE
     Indication: Acute myeloid leukaemia
     Dosage: 175 MG IV FOR 5 DAYS
     Route: 042
     Dates: start: 2021
  3. MITOXANTRONE [Suspect]
     Active Substance: MITOXANTRONE HYDROCHLORIDE
     Indication: Acute myeloid leukaemia
     Dosage: 14 MG, CYCLIC
     Route: 042
     Dates: start: 2021

REACTIONS (7)
  - Febrile neutropenia [Recovered/Resolved]
  - Thrombocytopenia [Unknown]
  - Anaemia [Unknown]
  - Neutropenic colitis [Unknown]
  - Klebsiella bacteraemia [Recovered/Resolved]
  - Anal fissure [Unknown]
  - Nausea [Unknown]

NARRATIVE: CASE EVENT DATE: 20210101
